FAERS Safety Report 7069661-5 (Version None)
Quarter: 2010Q4

REPORT INFORMATION
  Report Type: 
  Country: None (occurrence: None)
  Receive Date: 20101028
  Receipt Date: 20100420
  Transmission Date: 20110411
  Serious: No
  Sender: FDA-Public Use
  Company Number: US-WYE-H14733310

PATIENT
  Sex: Female
  Weight: 66.74 kg

DRUGS (2)
  1. PROTONIX [Suspect]
     Indication: GASTRIC DISORDER
     Dosage: UNKNOWN DOSE DAILY
     Route: 048
     Dates: start: 20050101, end: 20100101
  2. LIPITOR [Concomitant]

REACTIONS (4)
  - ABDOMINAL PAIN UPPER [None]
  - DECREASED APPETITE [None]
  - DYSPEPSIA [None]
  - NAUSEA [None]
